FAERS Safety Report 8431707-7 (Version None)
Quarter: 2012Q2

REPORT INFORMATION
  Report Type: 
  Country: None (occurrence: None)
  Receive Date: 20120613
  Receipt Date: 20120605
  Transmission Date: 20120825
  Serious: Yes (Other)
  Sender: FDA-Public Use
  Company Number: JP-JNJFOC-20120212685

PATIENT
  Sex: Female
  Weight: 50 kg

DRUGS (30)
  1. WARFARIN POTASSIUM [Interacting]
     Dosage: 1 PER 1 DAY
     Route: 048
     Dates: start: 20111012, end: 20111026
  2. PRORENAL [Concomitant]
     Indication: LUMBAR SPINAL STENOSIS
     Route: 048
     Dates: start: 20110502
  3. NEUROTROPIN [Concomitant]
     Route: 048
  4. WARFARIN POTASSIUM [Interacting]
     Indication: MYOCARDIAL INFARCTION
     Dosage: 1 PER DAY
     Route: 048
     Dates: start: 20120216
  5. WARFARIN POTASSIUM [Interacting]
     Dosage: 1 PER 1 DAY
     Route: 048
     Dates: start: 20111027, end: 20120215
  6. ZETIA [Concomitant]
     Indication: HYPERLIPIDAEMIA
     Route: 048
     Dates: start: 20101020
  7. AMITRIPTYLINE HCL [Concomitant]
     Indication: DEPRESSION
     Route: 048
     Dates: start: 20110608
  8. AMITRIPTYLINE HCL [Concomitant]
     Indication: INSOMNIA
     Route: 048
     Dates: start: 20110608
  9. FLUTICASONE PROPIONATE [Concomitant]
     Indication: ASTHMA
     Route: 055
  10. TRAMADOL HYDROCHLORIDE AND ACETAMINOPHEN [Suspect]
     Indication: TRIGEMINAL NEURALGIA
     Dosage: 1 DF X 1 PER 1 DAY
     Route: 048
     Dates: start: 20120118, end: 20120123
  11. WARFARIN POTASSIUM [Interacting]
     Dosage: 1 PER 1 DAY
     Route: 048
     Dates: start: 20120229, end: 20120229
  12. TEGRETOL [Concomitant]
     Indication: TRIGEMINAL NEURALGIA
     Route: 048
     Dates: start: 20060706
  13. ASPIRIN [Suspect]
     Indication: PRODUCT USED FOR UNKNOWN INDICATION
     Route: 048
     Dates: start: 20120216
  14. CRESTOR [Concomitant]
     Indication: HYPERLIPIDAEMIA
     Route: 048
     Dates: start: 20100512
  15. TRAMADOL HYDROCHLORIDE AND ACETAMINOPHEN [Suspect]
     Dosage: 1 PER 1 DAY
     Route: 048
     Dates: start: 20110826, end: 20110828
  16. WARFARIN POTASSIUM [Interacting]
     Dosage: 1 PER DAY
     Route: 048
     Dates: start: 20030101
  17. AMLODIPINE BESYLATE [Concomitant]
     Indication: HYPERTENSION
     Route: 048
     Dates: start: 20110112
  18. LANSOPRAZOLE [Concomitant]
     Indication: GASTROOESOPHAGEAL REFLUX DISEASE
     Route: 048
     Dates: start: 20110112
  19. TRAMADOL HYDROCHLORIDE AND ACETAMINOPHEN [Suspect]
     Dosage: 2 PER 1 DAY
     Route: 048
     Dates: start: 20110829, end: 20110914
  20. TRAMADOL HYDROCHLORIDE AND ACETAMINOPHEN [Suspect]
     Dosage: 3 PER 1 DAY
     Route: 048
     Dates: start: 20110915, end: 20111005
  21. TANATRIL [Concomitant]
     Indication: HYPERTENSION
     Route: 048
     Dates: start: 20101020
  22. TRAMADOL HYDROCHLORIDE AND ACETAMINOPHEN [Suspect]
     Dosage: 1 PER 1 DAY
     Route: 048
     Dates: start: 20120124, end: 20120215
  23. WARFARIN POTASSIUM [Interacting]
     Dosage: 1 PER 1 DAY
     Route: 048
     Dates: start: 20111006, end: 20111011
  24. DIGOXIN [Concomitant]
     Route: 065
  25. PRORENAL [Concomitant]
     Route: 048
  26. TEGRETOL [Concomitant]
     Route: 048
  27. WARFARIN POTASSIUM [Interacting]
     Dosage: 1 PER 1 DAY
     Route: 048
     Dates: start: 20110803, end: 20111005
  28. ASPIRIN [Suspect]
     Dosage: 1 PER DAY
     Route: 048
     Dates: start: 20030101, end: 20120215
  29. TEGRETOL [Concomitant]
     Dosage: 1 PER 1 DAY
     Route: 048
  30. KAMAG G [Concomitant]
     Route: 048

REACTIONS (3)
  - PROTHROMBIN TIME PROLONGED [None]
  - DRUG INTERACTION [None]
  - PLATELET COUNT DECREASED [None]
